FAERS Safety Report 20654449 (Version 1)
Quarter: 2022Q1

REPORT INFORMATION
  Report Type: Spontaneous
  Country: US (occurrence: None)
  Receive Date: 20220330
  Receipt Date: 20220330
  Transmission Date: 20220423
  Serious: Yes (Hospitalization)
  Sender: FDA-Public Use
  Company Number: None

PATIENT
  Age: 67 Year

DRUGS (1)
  1. CASIRIVIMAB\IMDEVIMAB [Suspect]
     Active Substance: CASIRIVIMAB\IMDEVIMAB
     Indication: COVID-19
     Route: 041
     Dates: start: 20220107, end: 20220107

REACTIONS (4)
  - Back pain [None]
  - Pain in extremity [None]
  - Pain [None]
  - Infusion related reaction [None]

NARRATIVE: CASE EVENT DATE: 20220107
